FAERS Safety Report 21655958 (Version 2)
Quarter: 2023Q2

REPORT INFORMATION
  Report Type: Spontaneous
  Country: US (occurrence: US)
  Receive Date: 20221129
  Receipt Date: 20230424
  Transmission Date: 20230721
  Serious: No
  Sender: FDA-Public Use
  Company Number: US-TEVA-2022-US-2824881

PATIENT
  Age: 16 Year
  Sex: Female

DRUGS (3)
  1. AJOVY [Suspect]
     Active Substance: FREMANEZUMAB-VFRM
     Indication: Product used for unknown indication
     Dosage: 225 MG / 1.5 ML, INJECTION (AUTOINJECTOR)
     Route: 065
     Dates: start: 202209
  2. AJOVY [Suspect]
     Active Substance: FREMANEZUMAB-VFRM
     Dosage: INJECTION (AUTOINJECTOR)
     Route: 065
     Dates: start: 20221020
  3. AJOVY [Suspect]
     Active Substance: FREMANEZUMAB-VFRM
     Dosage: 225 MG / 1.5 ML
     Route: 065

REACTIONS (6)
  - Injection site erythema [Unknown]
  - Injection site pain [Unknown]
  - Accidental exposure to product [Unknown]
  - Device leakage [Unknown]
  - Drug dose omission by device [Unknown]
  - Device defective [Unknown]

NARRATIVE: CASE EVENT DATE: 20221001
